FAERS Safety Report 22268513 (Version 3)
Quarter: 2023Q2

REPORT INFORMATION
  Report Type: Report from Study
  Country: CA (occurrence: None)
  Receive Date: 20230430
  Receipt Date: 20230530
  Transmission Date: 20230722
  Serious: Yes (Hospitalization)
  Sender: FDA-Public Use
  Company Number: CA-ROCHE-3337009

PATIENT
  Age: 64 Year
  Sex: Male
  Weight: 85 kg

DRUGS (3)
  1. UNSPECIFIED INGREDIENT [Suspect]
     Active Substance: UNSPECIFIED INGREDIENT
     Indication: Product used for unknown indication
     Route: 065
  2. CEPHALEXIN [Concomitant]
     Active Substance: CEPHALEXIN
     Indication: Pelvic fluid collection
     Route: 048
     Dates: start: 20230401, end: 20230411
  3. ZOLADEX [Concomitant]
     Active Substance: GOSERELIN ACETATE
     Route: 058
     Dates: start: 20220825, end: 20230216

REACTIONS (2)
  - Ill-defined disorder [Recovered/Resolved]
  - Radical prostatectomy [Recovered/Resolved]

NARRATIVE: CASE EVENT DATE: 20230401
